FAERS Safety Report 11379564 (Version 1)
Quarter: 2015Q3

REPORT INFORMATION
  Report Type: Spontaneous
  Country: US (occurrence: US)
  Receive Date: 20150814
  Receipt Date: 20150814
  Transmission Date: 20151125
  Serious: No
  Sender: FDA-Public Use
  Company Number: US-ASTRAZENECA-2013SE48010

PATIENT
  Age: 49 Year
  Sex: Male
  Weight: 124.7 kg

DRUGS (2)
  1. ONGLYZA [Suspect]
     Active Substance: SAXAGLIPTIN HYDROCHLORIDE
     Indication: TYPE 2 DIABETES MELLITUS
     Route: 048
     Dates: start: 201211
  2. ONGLYZA [Suspect]
     Active Substance: SAXAGLIPTIN HYDROCHLORIDE
     Indication: TYPE 2 DIABETES MELLITUS
     Route: 048

REACTIONS (6)
  - Weight decreased [Unknown]
  - Hypoaesthesia [Unknown]
  - Visual impairment [Unknown]
  - Drug ineffective [Unknown]
  - Feeling jittery [Unknown]
  - Paraesthesia [Unknown]
